FAERS Safety Report 19828416 (Version 2)
Quarter: 2021Q3

REPORT INFORMATION
  Report Type: Report from Study
  Country: None (occurrence: PR)
  Receive Date: 20210914
  Receipt Date: 20210930
  Transmission Date: 20211014
  Serious: Yes (Hospitalization)
  Sender: FDA-Public Use
  Company Number: PR-ABBVIE-21K-131-4076505-00

PATIENT
  Age: 73 Year
  Sex: Male
  Weight: 62.2 kg

DRUGS (2)
  1. VENCLEXTA [Suspect]
     Active Substance: VENETOCLAX
     Indication: MYELODYSPLASTIC SYNDROME
     Dosage: DOSE FOR 14 DAYS, EVERY 28 DAYS
     Route: 048
     Dates: start: 20210818, end: 2021
  2. VENCLEXTA [Suspect]
     Active Substance: VENETOCLAX
     Dosage: DOSE FOR 14 DAYS, EVERY 28 DAYS
     Route: 048
     Dates: start: 20210927

REACTIONS (3)
  - Heart rate decreased [Recovered/Resolved]
  - Haemoglobin decreased [Recovered/Resolved]
  - Blood pressure decreased [Recovered/Resolved]

NARRATIVE: CASE EVENT DATE: 20210906
